FAERS Safety Report 11112651 (Version 2)
Quarter: 2015Q3

REPORT INFORMATION
  Report Type: Spontaneous
  Country: US (occurrence: US)
  Receive Date: 20150514
  Receipt Date: 20150707
  Transmission Date: 20151125
  Serious: No
  Sender: FDA-Public Use
  Company Number: US-BIOGENIDEC-2015BI063000

PATIENT
  Sex: Female

DRUGS (1)
  1. TECFIDERA [Suspect]
     Active Substance: DIMETHYL FUMARATE
     Indication: MULTIPLE SCLEROSIS
     Route: 048

REACTIONS (10)
  - General symptom [Unknown]
  - Chills [Recovered/Resolved]
  - Nausea [Recovered/Resolved]
  - Diarrhoea [Recovered/Resolved]
  - Faecal incontinence [Unknown]
  - Vomiting [Recovered/Resolved]
  - Pyrexia [Recovered/Resolved]
  - Multiple sclerosis relapse [Recovered/Resolved]
  - Influenza like illness [Recovered/Resolved]
  - Headache [Recovered/Resolved]
